FAERS Safety Report 5827122-2 (Version None)
Quarter: 2008Q3

REPORT INFORMATION
  Report Type: 
  Country: None (occurrence: None)
  Receive Date: 20080729
  Receipt Date: 20080729
  Transmission Date: 20090109
  Serious: Yes (Hospitalization)
  Sender: FDA-Public Use
  Company Number: None

PATIENT
  Sex: Female
  Weight: 60.45 kg

DRUGS (2)
  1. CARBOPLATIN [Suspect]
     Dosage: 570 MG
     Dates: start: 20060407, end: 20060407
  2. TAXOL [Suspect]
     Dosage: 278 MG
     Dates: end: 20060407

REACTIONS (1)
  - FEMALE GENITAL TRACT FISTULA [None]
